FAERS Safety Report 9717549 (Version 1)
Quarter: 2013Q4

REPORT INFORMATION
  Report Type: Spontaneous
  Country: US (occurrence: US)
  Receive Date: 20131127
  Receipt Date: 20131127
  Transmission Date: 20140711
  Serious: No
  Sender: FDA-Public Use
  Company Number: US-GILEAD-2009-0020411

PATIENT
  Sex: Female
  Weight: 72.57 kg

DRUGS (11)
  1. LETAIRIS [Suspect]
     Indication: PULMONARY ARTERIAL HYPERTENSION
     Route: 048
     Dates: start: 20090202
  2. LOSARTIN [Concomitant]
  3. TENORMIN [Concomitant]
  4. ADULT ASPIRIN [Concomitant]
  5. LOVASTATIN [Concomitant]
  6. NASAREL [Concomitant]
  7. PRILOSEC [Concomitant]
  8. AMITRIPTYLINE [Concomitant]
  9. FLUOXETINE [Concomitant]
  10. MULTIVITAMIN [Concomitant]
  11. SLO-NIACIN [Concomitant]

REACTIONS (1)
  - Fatigue [Unknown]
